FAERS Safety Report 14450478 (Version 1)
Quarter: 2018Q1

REPORT INFORMATION
  Report Type: Report from Study
  Country: PT (occurrence: PT)
  Receive Date: 20180129
  Receipt Date: 20180129
  Transmission Date: 20180509
  Serious: Yes (Hospitalization, Other)
  Sender: FDA-Public Use
  Company Number: PT-ACTELION-A-CH2017-161853

PATIENT
  Age: 72 Year
  Sex: Female
  Weight: 57 kg

DRUGS (7)
  1. PREDNISOLONE. [Concomitant]
     Active Substance: PREDNISOLONE
     Indication: SYSTEMIC SCLERODERMA
  2. FUROSEMIDE. [Concomitant]
     Active Substance: FUROSEMIDE
     Indication: CARDIAC FAILURE
  3. TRACLEER [Suspect]
     Active Substance: BOSENTAN
     Indication: SCLERODERMA ASSOCIATED DIGITAL ULCER
     Dosage: 125 MG, BID
     Route: 048
     Dates: start: 20140113, end: 20140926
  4. METOTREXATE [Concomitant]
     Active Substance: METHOTREXATE SODIUM
     Indication: SYSTEMIC SCLERODERMA
  5. ALOPURINOL [Concomitant]
     Active Substance: ALLOPURINOL
     Indication: HYPERURICAEMIA
  6. FLUCLOXACILINA [Concomitant]
     Indication: SKIN ULCER
  7. TRACLEER [Suspect]
     Active Substance: BOSENTAN
     Dosage: 62.5 MG, BID
     Route: 048
     Dates: start: 20131202

REACTIONS (6)
  - Liver function test abnormal [Recovered/Resolved]
  - Biopsy liver [Unknown]
  - Blood alkaline phosphatase increased [Recovered/Resolved]
  - Alanine aminotransferase [Recovered/Resolved]
  - Bilirubin conjugated increased [Recovered/Resolved]
  - Aspartate aminotransferase [Recovered/Resolved]

NARRATIVE: CASE EVENT DATE: 20140519
